FAERS Safety Report 5356688-4 (Version None)
Quarter: 2007Q2

REPORT INFORMATION
  Report Type: 
  Country: None (occurrence: None)
  Receive Date: 20070530
  Receipt Date: 20061220
  Transmission Date: 20071010
  Serious: Yes (Hospitalization, Other)
  Sender: FDA-Public Use
  Company Number: US200608003811

PATIENT
  Age: 49 Year
  Sex: Female
  Weight: 83.9 kg

DRUGS (2)
  1. ZYPREXA [Suspect]
     Dosage: SEE IMAGE
     Dates: start: 20000401, end: 20011001
  2. ZYPREXA [Suspect]
     Dosage: SEE IMAGE
     Dates: start: 20011101, end: 20030101

REACTIONS (8)
  - CHEST PAIN [None]
  - DIABETES MELLITUS [None]
  - DIABETIC COMA [None]
  - DIABETIC KETOACIDOSIS [None]
  - HYPERGLYCAEMIA [None]
  - OBESITY [None]
  - PANCREATITIS [None]
  - PRESCRIBED OVERDOSE [None]
